FAERS Safety Report 23917487 (Version 2)
Quarter: 2024Q2

REPORT INFORMATION
  Report Type: Spontaneous
  Country: JP (occurrence: JP)
  Receive Date: 20240529
  Receipt Date: 20240626
  Transmission Date: 20240715
  Serious: Yes (Other)
  Sender: FDA-Public Use
  Company Number: JP-002147023-NVSJ2024JP006335

PATIENT
  Sex: Male

DRUGS (2)
  1. BEOVU [Suspect]
     Active Substance: BROLUCIZUMAB-DBLL
     Indication: Polypoidal choroidal vasculopathy
     Dosage: 6 MG
     Route: 031
  2. BEOVU [Suspect]
     Active Substance: BROLUCIZUMAB-DBLL
     Indication: Age-related macular degeneration

REACTIONS (5)
  - Vitreous opacities [Not Recovered/Not Resolved]
  - Anterior chamber inflammation [Recovering/Resolving]
  - Ocular hyperaemia [Unknown]
  - Retinal vasculitis [Not Recovered/Not Resolved]
  - Cognitive disorder [Unknown]
